FAERS Safety Report 21859381 (Version 1)
Quarter: 2023Q1

REPORT INFORMATION
  Report Type: Report from Study
  Country: US (occurrence: US)
  Receive Date: 20230113
  Receipt Date: 20230113
  Transmission Date: 20230417
  Serious: Yes (Other)
  Sender: FDA-Public Use
  Company Number: US-LEO Pharma-348190

PATIENT
  Sex: Female

DRUGS (11)
  1. Omega 3 acid [Concomitant]
     Indication: Product used for unknown indication
     Dosage: 1G,2 TABLETS TWICE A DAY
  2. METOPROLOL [Concomitant]
     Active Substance: METOPROLOL
     Indication: Product used for unknown indication
  3. AMLODIPINE [Concomitant]
     Active Substance: AMLODIPINE BESYLATE
     Indication: Product used for unknown indication
  4. VITAMIN D2 [Concomitant]
     Active Substance: ERGOCALCIFEROL
     Indication: Product used for unknown indication
  5. DEVICE [Suspect]
     Active Substance: DEVICE
     Indication: Eczema
  6. MONTELUKAST [Concomitant]
     Active Substance: MONTELUKAST SODIUM
     Indication: Product used for unknown indication
  7. OLMESARTAN [Concomitant]
     Active Substance: OLMESARTAN
     Indication: Product used for unknown indication
  8. HYDRALAZINE [Concomitant]
     Active Substance: HYDRALAZINE HYDROCHLORIDE
     Indication: Product used for unknown indication
  9. ADBRY [Suspect]
     Active Substance: TRALOKINUMAB-LDRM
     Indication: Eczema
     Dates: start: 20221227
  10. ADBRY [Suspect]
     Active Substance: TRALOKINUMAB-LDRM
     Indication: Eczema
     Dates: start: 20221227
  11. NEXLIZET [Concomitant]
     Active Substance: BEMPEDOIC ACID\EZETIMIBE
     Indication: Product used for unknown indication
     Dosage: DOSAGE : 180/10MG

REACTIONS (16)
  - Insomnia [Not Recovered/Not Resolved]
  - Fatigue [Not Recovered/Not Resolved]
  - Fatigue [Not Recovered/Not Resolved]
  - Injection site pain [Unknown]
  - Chest discomfort [Unknown]
  - Dyspnoea [Unknown]
  - Heart rate irregular [Not Recovered/Not Resolved]
  - Dyspnoea [Unknown]
  - Injection site pain [Unknown]
  - Cardiac flutter [Unknown]
  - Contusion [Not Recovered/Not Resolved]
  - Chest discomfort [Unknown]
  - Heart rate irregular [Not Recovered/Not Resolved]
  - Contusion [Not Recovered/Not Resolved]
  - Insomnia [Not Recovered/Not Resolved]
  - Cardiac flutter [Unknown]

NARRATIVE: CASE EVENT DATE: 20221227
